FAERS Safety Report 14018453 (Version 1)
Quarter: 2017Q3

REPORT INFORMATION
  Report Type: Spontaneous
  Country: US (occurrence: US)
  Receive Date: 20170928
  Receipt Date: 20170928
  Transmission Date: 20171128
  Serious: No
  Sender: FDA-Public Use
  Company Number: US-TEVA-797387ACC

PATIENT
  Sex: Female

DRUGS (1)
  1. GABAPENTIN. [Suspect]
     Active Substance: GABAPENTIN
     Dates: start: 20161222

REACTIONS (8)
  - Wrong technique in product usage process [Unknown]
  - Intentional product use issue [Unknown]
  - Disorientation [Unknown]
  - Feeling abnormal [Unknown]
  - Nervousness [Unknown]
  - Anxiety [Unknown]
  - Drug prescribing error [Unknown]
  - Confusional state [Unknown]
